FAERS Safety Report 16407232 (Version 1)
Quarter: 2019Q2

REPORT INFORMATION
  Report Type: Report from Study
  Country: CN (occurrence: CN)
  Receive Date: 20190608
  Receipt Date: 20190608
  Transmission Date: 20190711
  Serious: Yes (Other)
  Sender: FDA-Public Use
  Company Number: CN-ROCHE-1937582

PATIENT
  Age: 65 Year
  Sex: Male
  Weight: 67 kg

DRUGS (1)
  1. AVASTIN [Suspect]
     Active Substance: BEVACIZUMAB
     Indication: NON-SMALL CELL LUNG CANCER
     Route: 041
     Dates: start: 20160428, end: 20190529

REACTIONS (7)
  - Lipoma [Unknown]
  - Hypertension [Unknown]
  - Localised infection [Unknown]
  - Protein urine present [Unknown]
  - Weight decreased [Unknown]
  - Renal impairment [Unknown]
  - Blood creatinine increased [Unknown]

NARRATIVE: CASE EVENT DATE: 20180103
